FAERS Safety Report 7266496-5 (Version None)
Quarter: 2011Q1

REPORT INFORMATION
  Report Type: 
  Country: None (occurrence: None)
  Receive Date: 20110131
  Receipt Date: 20110124
  Transmission Date: 20110831
  Serious: Yes (Death, Other)
  Sender: FDA-Public Use
  Company Number: US-PFIZER INC-2011017438

PATIENT
  Age: 59 Year
  Sex: Female

DRUGS (9)
  1. VINCRISTINE [Suspect]
     Indication: MANTLE CELL LYMPHOMA STAGE IV
  2. DOXORUBICIN HCL [Suspect]
     Indication: MANTLE CELL LYMPHOMA STAGE IV
  3. MELPHALAN [Suspect]
     Indication: MANTLE CELL LYMPHOMA STAGE IV
     Dosage: 265 MG, 1X/DAY, DAY -1
     Route: 042
  4. RITUXIMAB [Suspect]
     Indication: MANTLE CELL LYMPHOMA STAGE IV
  5. CYCLOPHOSPHAMIDE [Suspect]
     Indication: MANTLE CELL LYMPHOMA STAGE IV
  6. DEXAMETHASONE [Suspect]
     Indication: MANTLE CELL LYMPHOMA STAGE IV
  7. CYTARABINE [Suspect]
     Indication: MANTLE CELL LYMPHOMA STAGE IV
     Dosage: 570 MG, DAYS -5 TO -2
     Route: 042
  8. ETOPOSIDE [Suspect]
     Indication: MANTLE CELL LYMPHOMA STAGE IV
     Dosage: 190 MG, 2X/DAY, DAYS -5 TO -2
     Route: 042
  9. CARMUSTINE [Suspect]
     Indication: MANTLE CELL LYMPHOMA STAGE IV
     Dosage: 570 MG, 2X/DAY, DAY -6
     Route: 042

REACTIONS (10)
  - STEM CELL TRANSPLANT [None]
  - PNEUMOTHORAX [None]
  - PULMONARY OEDEMA [None]
  - THROMBOSIS IN DEVICE [None]
  - BRADYCARDIA [None]
  - RENAL FAILURE [None]
  - PNEUMONIA [None]
  - PULMONARY CONGESTION [None]
  - VENTRICULAR TACHYCARDIA [None]
  - CARDIAC ARREST [None]
